FAERS Safety Report 5698385-1 (Version None)
Quarter: 2008Q2

REPORT INFORMATION
  Report Type: 
  Country: None (occurrence: None)
  Receive Date: 20080408
  Receipt Date: 20080401
  Transmission Date: 20081010
  Serious: Yes (Hospitalization)
  Sender: FDA-Public Use
  Company Number: GR-ABBOTT-08P-066-0436209-00

PATIENT
  Age: 67 Year
  Sex: Female
  Weight: 46.5 kg

DRUGS (6)
  1. ZEMPLAR [Suspect]
     Indication: HYPERPARATHYROIDISM SECONDARY
     Route: 042
     Dates: start: 20070525
  2. CALCIUM CARBONATE [Concomitant]
     Indication: PROPHYLAXIS
     Route: 048
  3. CINACALCET [Concomitant]
     Indication: HYPERPARATHYROIDISM SECONDARY
     Route: 048
  4. SEVELAMER [Concomitant]
     Indication: PROPHYLAXIS
     Route: 048
  5. FOLIC ACID [Concomitant]
     Indication: ANAEMIA
     Route: 048
  6. MEGACALCIUM [Concomitant]
     Indication: HYPERPARATHYROIDISM SECONDARY
     Route: 048

REACTIONS (3)
  - CHILLS [None]
  - PYREXIA [None]
  - RESPIRATORY TRACT INFECTION [None]
